FAERS Safety Report 19951577 (Version 6)
Quarter: 2022Q2

REPORT INFORMATION
  Report Type: Report from Study
  Country: SE (occurrence: SE)
  Receive Date: 20211013
  Receipt Date: 20220603
  Transmission Date: 20220721
  Serious: No
  Sender: FDA-Public Use
  Company Number: SE-JNJFOC-20211005225

PATIENT
  Age: 28 Year
  Sex: Male
  Weight: 102 kg

DRUGS (3)
  1. SPRAVATO [Suspect]
     Active Substance: ESKETAMINE
     Indication: Depression
     Dosage: TOTAL 3 DOSES (16-SEP-2021; 21-SEP-2021; 23-SEP-2021)
     Dates: start: 20210916, end: 20210916
  2. SPRAVATO [Suspect]
     Active Substance: ESKETAMINE
     Dates: start: 20210928
  3. ALPRAZOLAM [Suspect]
     Active Substance: ALPRAZOLAM
     Route: 048

REACTIONS (6)
  - Bradycardia [Recovered/Resolved]
  - Flatulence [Recovering/Resolving]
  - Diarrhoea [Recovered/Resolved]
  - Nausea [Recovered/Resolved]
  - Drug ineffective [Recovered/Resolved]
  - Fatigue [Recovered/Resolved]

NARRATIVE: CASE EVENT DATE: 20210916
